FAERS Safety Report 24916916 (Version 1)
Quarter: 2025Q1

REPORT INFORMATION
  Report Type: Spontaneous
  Country: US (occurrence: US)
  Receive Date: 20250203
  Receipt Date: 20250203
  Transmission Date: 20250408
  Serious: No
  Sender: MERCK
  Company Number: US-009507513-2501USA006667

PATIENT
  Sex: Female
  Weight: 64 kg

DRUGS (19)
  1. KEYTRUDA [Suspect]
     Active Substance: PEMBROLIZUMAB
     Indication: B-cell lymphoma refractory
  2. DEXAMETHASONE [Suspect]
     Active Substance: DEXAMETHASONE
     Route: 065
  3. TISAGENLECLEUCEL [Suspect]
     Active Substance: TISAGENLECLEUCEL
     Route: 042
  4. RITUXIMAB [Suspect]
     Active Substance: RITUXIMAB
     Route: 065
     Dates: start: 20201120
  5. IFOSFAMIDE [Suspect]
     Active Substance: IFOSFAMIDE
     Route: 065
     Dates: start: 20201121
  6. CARBOPLATIN [Suspect]
     Active Substance: CARBOPLATIN
     Route: 065
     Dates: start: 20201121
  7. ETOPOSIDE [Suspect]
     Active Substance: ETOPOSIDE
  8. MESNA [Suspect]
     Active Substance: MESNA
     Route: 065
     Dates: start: 20201121
  9. GEMCITABINE [Suspect]
     Active Substance: GEMCITABINE
     Route: 065
     Dates: start: 20210107
  10. CISPLATIN [Suspect]
     Active Substance: CISPLATIN
     Route: 065
  11. ACETAMINOPHEN [Concomitant]
     Active Substance: ACETAMINOPHEN
  12. ALBUTEROL SULFATE [Concomitant]
     Active Substance: ALBUTEROL SULFATE
  13. LEVOFLOXACIN [Concomitant]
     Active Substance: LEVOFLOXACIN
  14. FLUCONAZOLE [Concomitant]
     Active Substance: FLUCONAZOLE
  15. ACYCLOVIR [Concomitant]
     Active Substance: ACYCLOVIR
  16. LOPERAMIDE [Concomitant]
     Active Substance: LOPERAMIDE
  17. FLUDARABINE [Concomitant]
     Active Substance: FLUDARABINE PHOSPHATE
  18. CYCLOPHOSPHAMIDE [Concomitant]
     Active Substance: CYCLOPHOSPHAMIDE
  19. FERROUS SULFATE [Concomitant]
     Active Substance: FERROUS SULFATE

REACTIONS (1)
  - Maternal exposure timing unspecified [Unknown]
